FAERS Safety Report 9096337 (Version 20)
Quarter: 2015Q1

REPORT INFORMATION
  Report Type: Report from Study
  Country: FR (occurrence: FR)
  Receive Date: 20130207
  Receipt Date: 20150101
  Transmission Date: 20150721
  Serious: Yes (Death, Hospitalization)
  Sender: FDA-Public Use
  Company Number: FR-ROCHE-1186199

PATIENT
  Age: 77 Year
  Sex: Female
  Weight: 70 kg

DRUGS (9)
  1. CALENDULA [Concomitant]
     Route: 065
     Dates: start: 20130103
  2. TRASTUZUMAB [Suspect]
     Active Substance: TRASTUZUMAB
     Indication: HER-2 POSITIVE BREAST CANCER
     Dosage: LAST DOSE PRIOR TO SAE: 03/JAN/2013
     Route: 058
     Dates: start: 20121030, end: 20130115
  3. ORBENINE [Concomitant]
     Active Substance: CLOXACILLIN SODIUM
     Route: 065
     Dates: start: 20121221
  4. TAHOR [Concomitant]
     Active Substance: ATORVASTATIN CALCIUM
  5. NEULASTA [Concomitant]
     Active Substance: PEGFILGRASTIM
     Dosage: STOP DATE: DEC/2012
     Route: 065
     Dates: start: 20121221
  6. RILMENIDINE [Concomitant]
     Active Substance: RILMENIDINE
  7. CYCLOPHOSPHAMIDE. [Suspect]
     Active Substance: CYCLOPHOSPHAMIDE
     Indication: CHEMOTHERAPY
     Route: 065
     Dates: start: 20121031, end: 20130103
  8. SOLUPRED (FRANCE) [Concomitant]
     Active Substance: PREDNISOLONE
     Route: 065
     Dates: start: 20130103
  9. DOCETAXEL. [Suspect]
     Active Substance: DOCETAXEL
     Indication: CHEMOTHERAPY
     Route: 065
     Dates: start: 20121031, end: 20130103

REACTIONS (1)
  - Neutropenic sepsis [Fatal]

NARRATIVE: CASE EVENT DATE: 20130110
